FAERS Safety Report 23526827 (Version 2)
Quarter: 2024Q1

REPORT INFORMATION
  Report Type: Spontaneous
  Country: JP (occurrence: JP)
  Receive Date: 20240215
  Receipt Date: 20240313
  Transmission Date: 20240410
  Serious: Yes (Life-Threatening, Hospitalization, Other)
  Sender: FDA-Public Use
  Company Number: JP-BAYER-2024A024812

PATIENT
  Age: 67 Year
  Sex: Male
  Weight: 70.2 kg

DRUGS (5)
  1. NUBEQA [Suspect]
     Active Substance: DAROLUTAMIDE
     Indication: Prostate cancer
     Dosage: DAILY DOSE 600 MG
     Route: 048
     Dates: start: 20231003, end: 20231213
  2. DOCETAXEL [Suspect]
     Active Substance: DOCETAXEL\DOCETAXEL ANHYDROUS
     Dosage: 75MG/M2
     Dates: start: 20231031, end: 20231127
  3. DOCETAXEL [Suspect]
     Active Substance: DOCETAXEL\DOCETAXEL ANHYDROUS
     Dosage: 60MG/M2
     Dates: start: 20231128, end: 20231212
  4. PREDNISOLONE [Concomitant]
     Active Substance: PREDNISOLONE
     Dosage: 20MG
     Dates: start: 20231031
  5. PEGFILGRASTIM [Concomitant]
     Active Substance: PEGFILGRASTIM
     Dosage: UNK
     Dates: start: 20231128

REACTIONS (5)
  - Interstitial lung disease [Recovering/Resolving]
  - Pulmonary hypertension [None]
  - Malaise [None]
  - KL-6 increased [None]
  - Oxygen saturation decreased [None]

NARRATIVE: CASE EVENT DATE: 20231212
